FAERS Safety Report 16270170 (Version 1)
Quarter: 2019Q2

REPORT INFORMATION
  Report Type: Spontaneous
  Country: US (occurrence: US)
  Receive Date: 20190503
  Receipt Date: 20190503
  Transmission Date: 20190711
  Serious: Yes (Hospitalization, Other)
  Sender: FDA-Public Use
  Company Number: US-ASTRAZENECA-2019SE66195

PATIENT
  Age: 71 Year
  Sex: Male
  Weight: 56.7 kg

DRUGS (7)
  1. TUDORZA PRESSAIR [Suspect]
     Active Substance: ACLIDINIUM BROMIDE
     Indication: EMPHYSEMA
     Dosage: 400 UG ONE PUFF BID
     Route: 055
     Dates: start: 2018
  2. TUDORZA PRESSAIR [Suspect]
     Active Substance: ACLIDINIUM BROMIDE
     Indication: CHRONIC OBSTRUCTIVE PULMONARY DISEASE
     Dosage: 400 UG ONE PUFF BID
     Route: 055
     Dates: start: 2018
  3. ADVAIR HFA [Concomitant]
     Active Substance: FLUTICASONE PROPIONATE\SALMETEROL XINAFOATE
  4. TUDORZA PRESSAIR [Suspect]
     Active Substance: ACLIDINIUM BROMIDE
     Indication: LUNG NEOPLASM MALIGNANT
     Dosage: 400 UG ONE PUFF BID
     Route: 055
     Dates: start: 2018
  5. TUDORZA PRESSAIR [Suspect]
     Active Substance: ACLIDINIUM BROMIDE
     Indication: CHRONIC OBSTRUCTIVE PULMONARY DISEASE
     Dosage: 400 UG ONE PUFF BID
     Route: 055
     Dates: start: 2019
  6. TUDORZA PRESSAIR [Suspect]
     Active Substance: ACLIDINIUM BROMIDE
     Indication: EMPHYSEMA
     Dosage: 400 UG ONE PUFF BID
     Route: 055
     Dates: start: 2019
  7. TUDORZA PRESSAIR [Suspect]
     Active Substance: ACLIDINIUM BROMIDE
     Indication: LUNG NEOPLASM MALIGNANT
     Dosage: 400 UG ONE PUFF BID
     Route: 055
     Dates: start: 2019

REACTIONS (7)
  - Candida infection [Unknown]
  - Off label use [Unknown]
  - Pneumonia [Recovering/Resolving]
  - Deafness [Not Recovered/Not Resolved]
  - Pleural effusion [Recovering/Resolving]
  - Product use in unapproved indication [Unknown]
  - Total lung capacity decreased [Recovering/Resolving]

NARRATIVE: CASE EVENT DATE: 2018
